FAERS Safety Report 18564238 (Version 5)
Quarter: 2025Q2

REPORT INFORMATION
  Report Type: Spontaneous
  Country: DE (occurrence: DE)
  Receive Date: 20201201
  Receipt Date: 20250624
  Transmission Date: 20250717
  Serious: Yes (Death, Hospitalization, Other)
  Sender: AUROBINDO
  Company Number: DE-GLENMARK PHARMACEUTICALS-2020GMK050584

PATIENT
  Age: 71 Year
  Sex: Female
  Weight: 107 kg

DRUGS (4)
  1. LINEZOLID [Suspect]
     Active Substance: LINEZOLID
     Indication: Enterococcal infection
     Route: 065
  2. LINEZOLID [Suspect]
     Active Substance: LINEZOLID
     Indication: Nosocomial infection
  3. LINEZOLID [Suspect]
     Active Substance: LINEZOLID
     Indication: Liver abscess
  4. MEROPENEM [Suspect]
     Active Substance: MEROPENEM
     Indication: Enterococcal infection
     Route: 065

REACTIONS (4)
  - Pathogen resistance [Fatal]
  - Disease progression [Fatal]
  - Genotype drug resistance test positive [Unknown]
  - Drug resistance [Unknown]
